FAERS Safety Report 23165394 (Version 1)
Quarter: 2023Q4

REPORT INFORMATION
  Report Type: Report from Study
  Country: KR (occurrence: KR)
  Receive Date: 20231109
  Receipt Date: 20231109
  Transmission Date: 20240110
  Serious: Yes (Hospitalization, Other)
  Sender: FDA-Public Use
  Company Number: KR-MYLANLABS-2023M1119200

PATIENT
  Age: 58 Year
  Sex: Female
  Weight: 66 kg

DRUGS (19)
  1. TRASTUZUMAB [Suspect]
     Active Substance: TRASTUZUMAB
     Indication: Breast cancer
     Dosage: 600 MILLIGRAM, Q3W
     Route: 058
     Dates: start: 20160118
  2. PREGABALIN [Concomitant]
     Active Substance: PREGABALIN
     Indication: Mononeuropathy
     Dosage: 150 MILLIGRAM
     Route: 048
     Dates: start: 20160302, end: 20160522
  3. ACETAMINOPHEN\TRAMADOL HYDROCHLORIDE [Concomitant]
     Active Substance: ACETAMINOPHEN\TRAMADOL HYDROCHLORIDE
     Indication: Mononeuropathy
     Dosage: 975 MILLIGRAM
     Route: 048
     Dates: start: 20160318, end: 20160622
  4. GABAPENTIN [Concomitant]
     Active Substance: GABAPENTIN
     Indication: Mononeuropathy
     Dosage: 900 MILLIGRAM
     Route: 048
     Dates: start: 20160318, end: 20160622
  5. AMLODIPINE\TELMISARTAN [Concomitant]
     Active Substance: AMLODIPINE\TELMISARTAN
     Indication: Essential hypertension
     Dosage: 40 MILLIGRAM
     Route: 048
     Dates: start: 20140305
  6. LIPITOR [Concomitant]
     Active Substance: ATORVASTATIN CALCIUM
     Indication: Hyperlipidaemia
     Dosage: 10 MILLIGRAM
     Route: 048
     Dates: start: 20140305
  7. CEFEPIME HYDROCHLORIDE [Concomitant]
     Active Substance: CEFEPIME HYDROCHLORIDE
     Indication: Febrile neutropenia
     Dosage: 4 GRAM
     Route: 042
     Dates: start: 20160129, end: 20160408
  8. CEFDITOREN PIVOXIL [Concomitant]
     Active Substance: CEFDITOREN PIVOXIL
     Indication: Prophylaxis
     Dosage: 300 MILLIGRAM
     Route: 048
     Dates: start: 20160131, end: 20160416
  9. PROPACETAMOL HYDROCHLORIDE [Concomitant]
     Active Substance: PROPACETAMOL HYDROCHLORIDE
     Indication: Pyrexia
     Dosage: 1 GRAM
     Route: 042
     Dates: start: 20160129, end: 20160406
  10. MEGESTROL ACETATE [Concomitant]
     Active Substance: MEGESTROL ACETATE
     Indication: Decreased appetite
     Dosage: 1200 MILLIGRAM
     Route: 048
     Dates: start: 20160203, end: 20160206
  11. MONTMORILLONITE [Concomitant]
     Active Substance: MONTMORILLONITE
     Indication: Diarrhoea
     Dosage: 3 GRAM
     Route: 048
     Dates: start: 20160131, end: 20160131
  12. MONTMORILLONITE [Concomitant]
     Active Substance: MONTMORILLONITE
     Dosage: 9 GRAM
     Route: 048
     Dates: start: 20160203, end: 20160203
  13. OXYCODONE HYDROCHLORIDE [Concomitant]
     Active Substance: OXYCODONE HYDROCHLORIDE
     Dosage: 60 MILLIGRAM
     Route: 048
     Dates: start: 20160201, end: 20160208
  14. IBUPROFEN ARGININE [Concomitant]
     Active Substance: IBUPROFEN ARGININE
     Indication: Myalgia
     Dosage: 600 MILLIGRAM
     Route: 048
     Dates: start: 20160322, end: 20160325
  15. AMBROXOL HYDROCHLORIDE [Concomitant]
     Active Substance: AMBROXOL HYDROCHLORIDE
     Indication: Sputum abnormal
     Dosage: 90 MILLIGRAM
     Route: 048
     Dates: start: 20160407, end: 20160408
  16. LACTULOSE [Concomitant]
     Active Substance: LACTULOSE
     Indication: Constipation
     Dosage: 60 MILLILITER
     Route: 048
     Dates: start: 20160407, end: 20160411
  17. ACETYLCYSTEINE [Concomitant]
     Active Substance: ACETYLCYSTEINE
     Indication: Sputum abnormal
     Dosage: 600 MILLIGRAM
     Route: 048
     Dates: start: 20160322, end: 20160325
  18. ACETYLCYSTEINE [Concomitant]
     Active Substance: ACETYLCYSTEINE
     Dosage: 600 MILLIGRAM
     Route: 048
     Dates: start: 20160322, end: 20160325
  19. ESOMEPRAZOLE [Concomitant]
     Active Substance: ESOMEPRAZOLE
     Dosage: UNK
     Route: 065

REACTIONS (11)
  - Febrile neutropenia [Recovered/Resolved]
  - Diarrhoea [Recovered/Resolved]
  - Neuropathy peripheral [Recovered/Resolved]
  - Hepatic function abnormal [Recovering/Resolving]
  - Sputum abnormal [Recovered/Resolved]
  - Rhinorrhoea [Recovered/Resolved]
  - Myalgia [Recovered/Resolved]
  - Oedema peripheral [Recovered/Resolved]
  - Constipation [Recovered/Resolved]
  - Cough [Recovered/Resolved]
  - Decreased appetite [Recovered/Resolved]

NARRATIVE: CASE EVENT DATE: 20160126
